FAERS Safety Report 18860605 (Version 1)
Quarter: 2021Q1

REPORT INFORMATION
  Report Type: Spontaneous
  Country: US (occurrence: US)
  Receive Date: 20210208
  Receipt Date: 20210208
  Transmission Date: 20210420
  Serious: No
  Sender: FDA-Public Use
  Company Number: US-SA-2021SA038712

PATIENT
  Sex: Female

DRUGS (8)
  1. SUCRALFATE. [Concomitant]
     Active Substance: SUCRALFATE
  2. PROGESTERONE. [Concomitant]
     Active Substance: PROGESTERONE
  3. DUPIXENT [Suspect]
     Active Substance: DUPILUMAB
     Indication: ILLNESS
     Dosage: 300 MG, QOW
     Route: 058
     Dates: start: 2020
  4. SINGULAIR [Concomitant]
     Active Substance: MONTELUKAST SODIUM
  5. ESTRADIOL. [Concomitant]
     Active Substance: ESTRADIOL
  6. ZYRTEC [Concomitant]
     Active Substance: CETIRIZINE HYDROCHLORIDE
  7. PULMICORT TURBUHALER [Concomitant]
     Active Substance: BUDESONIDE
  8. SYMBICORT [Concomitant]
     Active Substance: BUDESONIDE\FORMOTEROL FUMARATE DIHYDRATE

REACTIONS (3)
  - Injection site pruritus [Unknown]
  - Injection site swelling [Unknown]
  - Injection site erythema [Unknown]
